FAERS Safety Report 19566911 (Version 1)
Quarter: 2021Q3

REPORT INFORMATION
  Report Type: Other
  Country: TW (occurrence: TW)
  Receive Date: 20210716
  Receipt Date: 20210716
  Transmission Date: 20211014
  Serious: Yes (Other)
  Sender: FDA-Public Use
  Company Number: TW-ROCHE-2869078

PATIENT
  Sex: Female

DRUGS (1)
  1. HERCEPTIN [Suspect]
     Active Substance: TRASTUZUMAB
     Indication: BREAST CANCER
     Route: 058
     Dates: start: 2021

REACTIONS (3)
  - Abdominal pain upper [Recovering/Resolving]
  - Hallucination, auditory [Unknown]
  - Fatigue [Unknown]

NARRATIVE: CASE EVENT DATE: 2021
